FAERS Safety Report 6937533-X (Version None)
Quarter: 2010Q3

REPORT INFORMATION
  Report Type: 
  Country: None (occurrence: None)
  Receive Date: 20100823
  Receipt Date: 20100823
  Transmission Date: 20110219
  Serious: No
  Sender: FDA-Public Use
  Company Number: None

PATIENT
  Age: 44 Year
  Sex: Female
  Weight: 81.1939 kg

DRUGS (1)
  1. LEVOXYL [Suspect]
     Indication: HYPOTHYROIDISM
     Dosage: 150 MCG ONCE DAILY PO
     Route: 048
     Dates: start: 20100601, end: 20100801

REACTIONS (2)
  - POOR QUALITY DRUG ADMINISTERED [None]
  - PRODUCT COUNTERFEIT [None]
